FAERS Safety Report 25460750 (Version 1)
Quarter: 2025Q2

REPORT INFORMATION
  Report Type: Spontaneous
  Country: CN (occurrence: CN)
  Receive Date: 20250620
  Receipt Date: 20250620
  Transmission Date: 20250716
  Serious: Yes (Other)
  Sender: NOVARTIS
  Company Number: CN-002147023-NVSC2025CN096971

PATIENT
  Age: 35 Year
  Sex: Female

DRUGS (1)
  1. CYCLOSPORINE [Suspect]
     Active Substance: CYCLOSPORINE
     Indication: Aplastic anaemia
     Route: 065

REACTIONS (2)
  - Gingival hypertrophy [Recovered/Resolved]
  - Off label use [Unknown]
